FAERS Safety Report 18894311 (Version 3)
Quarter: 2022Q4

REPORT INFORMATION
  Report Type: Report from Study
  Country: BR (occurrence: None)
  Receive Date: 20210215
  Receipt Date: 20221027
  Transmission Date: 20230112
  Serious: Yes (Death, Other)
  Sender: FDA-Public Use
  Company Number: BR-ROCHE-2724397

PATIENT
  Age: 36 Year
  Sex: Male
  Weight: 150 kg

DRUGS (67)
  1. TOCILIZUMAB [Suspect]
     Active Substance: TOCILIZUMAB
     Indication: COVID-19 pneumonia
     Dosage: THE START TIME OF MOST RECENT DOSE OF BLINDED TOCILIZUMAB PRIOR TO AE ONSET: 17:20
     Route: 042
     Dates: start: 20201120
  2. REMDESIVIR [Suspect]
     Active Substance: REMDESIVIR
     Indication: COVID-19 pneumonia
     Dosage: THE VOLUME OF LAST REMDESIVIR ADMINISTERED PRIOR TO AE ONSET: 100 ML?THE DATE OF MOST RECENT DOSE OF
     Route: 042
     Dates: start: 20201120
  3. NOREPINEPHRINE [Concomitant]
     Active Substance: NOREPINEPHRINE
     Dates: start: 20201123, end: 20201128
  4. ASPIRIN [Concomitant]
     Active Substance: ASPIRIN
     Indication: Cerebrovascular accident
     Dates: start: 20201118, end: 20201118
  5. AMLODIPINE [Concomitant]
     Active Substance: AMLODIPINE BESYLATE
     Indication: Hypertension
     Dates: start: 20201119, end: 20201123
  6. AMLODIPINE [Concomitant]
     Active Substance: AMLODIPINE BESYLATE
     Dates: start: 2000, end: 20201116
  7. AZITHROMYCIN [Concomitant]
     Active Substance: AZITHROMYCIN
     Indication: COVID-19
     Dates: start: 20201124, end: 20201127
  8. CARVEDILOL [Concomitant]
     Active Substance: CARVEDILOL
     Indication: Hypertension
     Dates: start: 20201117, end: 20201119
  9. CARVEDILOL [Concomitant]
     Active Substance: CARVEDILOL
     Dates: start: 20201119, end: 20201122
  10. CARVEDILOL [Concomitant]
     Active Substance: CARVEDILOL
     Dates: start: 2000, end: 20201116
  11. CEFTAZIDIME [Concomitant]
     Active Substance: CEFTAZIDIME
     Indication: COVID-19
     Dates: start: 20201124, end: 20201124
  12. CEFTAZIDIME [Concomitant]
     Active Substance: CEFTAZIDIME
     Dates: start: 20201125, end: 20201127
  13. CISATRACURIUM [Concomitant]
     Active Substance: CISATRACURIUM
     Indication: Sedation
     Dates: start: 20201123, end: 20201123
  14. CISATRACURIUM [Concomitant]
     Active Substance: CISATRACURIUM
     Dates: start: 20201129, end: 20201201
  15. DEXAMETHASONE [Concomitant]
     Active Substance: DEXAMETHASONE
     Indication: Severe acute respiratory syndrome
     Dates: start: 20201118, end: 20201127
  16. DEXAMETHASONE [Concomitant]
     Active Substance: DEXAMETHASONE
     Indication: COVID-19
  17. ENOXAPARIN [Concomitant]
     Active Substance: ENOXAPARIN
     Indication: COVID-19
     Dates: start: 20201117, end: 20201124
  18. ENOXAPARIN [Concomitant]
     Active Substance: ENOXAPARIN
     Dates: start: 20201124, end: 20201127
  19. ENOXAPARIN [Concomitant]
     Active Substance: ENOXAPARIN
     Dates: start: 20201130, end: 20201201
  20. ENOXAPARIN [Concomitant]
     Active Substance: ENOXAPARIN
     Dates: start: 20201124, end: 20201127
  21. ENOXAPARIN [Concomitant]
     Active Substance: ENOXAPARIN
     Dates: start: 20201130, end: 20201201
  22. SPIRONOLACTONE [Concomitant]
     Active Substance: SPIRONOLACTONE
     Indication: Hypertension
     Dates: start: 20201117, end: 20201119
  23. SPIRONOLACTONE [Concomitant]
     Active Substance: SPIRONOLACTONE
     Dates: start: 20201120, end: 20201123
  24. SPIRONOLACTONE [Concomitant]
     Active Substance: SPIRONOLACTONE
     Dates: start: 2000, end: 20201116
  25. FENOTEROL [Concomitant]
     Active Substance: FENOTEROL
     Indication: COVID-19
     Dates: start: 20201119, end: 20201201
  26. FENTANYL [Concomitant]
     Active Substance: FENTANYL
     Indication: Sedation
     Dates: start: 20201126, end: 20201126
  27. FENTANYL [Concomitant]
     Active Substance: FENTANYL
     Dates: start: 20201129, end: 20201129
  28. FENTANYL [Concomitant]
     Active Substance: FENTANYL
     Dates: start: 20201201, end: 20201202
  29. FUROSEMIDE [Concomitant]
     Active Substance: FUROSEMIDE
     Indication: Hypertension
     Dates: start: 20201119, end: 20201123
  30. FUROSEMIDE [Concomitant]
     Active Substance: FUROSEMIDE
     Dates: start: 20201121, end: 20201121
  31. FUROSEMIDE [Concomitant]
     Active Substance: FUROSEMIDE
     Dates: start: 20201201, end: 20201202
  32. HYDRALAZINE [Concomitant]
     Active Substance: HYDRALAZINE HYDROCHLORIDE
     Indication: Hypertension
     Dates: start: 20201117, end: 20201120
  33. HYDRALAZINE [Concomitant]
     Active Substance: HYDRALAZINE HYDROCHLORIDE
     Dates: start: 2000, end: 20201116
  34. INSULIN NOS [Concomitant]
     Active Substance: INSULIN NOS
     Indication: Diabetes mellitus
     Dates: start: 20201117, end: 20201117
  35. INSULIN NOS [Concomitant]
     Active Substance: INSULIN NOS
     Dates: start: 20201121, end: 20201122
  36. INSULIN NOS [Concomitant]
     Active Substance: INSULIN NOS
     Dates: start: 20021117, end: 20201122
  37. INSULIN NOS [Concomitant]
     Active Substance: INSULIN NOS
     Dates: start: 20201119, end: 20201122
  38. INSULIN NOS [Concomitant]
     Active Substance: INSULIN NOS
     Dates: start: 20201120, end: 20201124
  39. IPRATROPIUM [Concomitant]
     Active Substance: IPRATROPIUM
     Indication: COVID-19
     Dates: start: 20201121, end: 20201201
  40. MIDAZOLAM [Concomitant]
     Active Substance: MIDAZOLAM
     Indication: Sedation
     Dates: start: 20201129, end: 20201202
  41. NOREPINEPHRINE [Concomitant]
     Active Substance: NOREPINEPHRINE
     Indication: Haemodynamic instability
     Dates: start: 20201130, end: 20201202
  42. OMEPRAZOLE [Concomitant]
     Active Substance: OMEPRAZOLE
     Indication: Gastrooesophageal reflux disease
     Dates: start: 20201120, end: 20201201
  43. OMEPRAZOLE [Concomitant]
     Active Substance: OMEPRAZOLE
     Dates: start: 2000, end: 20201116
  44. VASOPRESSIN [Concomitant]
     Active Substance: VASOPRESSIN
     Indication: COVID-19
     Dates: start: 20201129, end: 20201202
  45. ASPIRIN [Concomitant]
     Active Substance: ASPIRIN
     Indication: Cerebrovascular accident
     Dates: start: 2018, end: 20201116
  46. LOSARTAN [Concomitant]
     Active Substance: LOSARTAN
     Indication: Hypertension
     Dates: start: 2000, end: 20201116
  47. SIMVASTATIN [Concomitant]
     Active Substance: SIMVASTATIN
     Indication: Dyslipidaemia
     Dates: start: 2000, end: 20201118
  48. OXYGEN [Concomitant]
     Active Substance: OXYGEN
     Dosage: 24-NOV-2020, 23-NOV-2020,
     Route: 007
     Dates: start: 20201123
  49. OXYGEN [Concomitant]
     Active Substance: OXYGEN
     Dosage: 29-NOV-2020
     Route: 007
     Dates: start: 20201130
  50. OXYGEN [Concomitant]
     Active Substance: OXYGEN
     Dosage: 100 L/MIN : 22-NOV-2020, 29-NOV-2020, 20-NOV-2020, 25-NOV-2020, 27-NOV-2020
     Route: 055
     Dates: start: 20201121
  51. OXYGEN [Concomitant]
     Active Substance: OXYGEN
     Dosage: 26-NOV-2020
     Dates: start: 20201127
  52. OXYGEN [Concomitant]
     Active Substance: OXYGEN
     Dosage: 01-DEC-2020
     Route: 007
     Dates: start: 20201125
  53. OXYGEN [Concomitant]
     Active Substance: OXYGEN
     Dates: start: 20201128
  54. OXYGEN [Concomitant]
     Active Substance: OXYGEN
     Route: 007
     Dates: start: 20201124
  55. OXYGEN [Concomitant]
     Active Substance: OXYGEN
     Dosage: 40 L/MIN
     Route: 055
     Dates: start: 20201120
  56. OXYGEN [Concomitant]
     Active Substance: OXYGEN
     Dosage: 40 L/MIN
     Route: 055
     Dates: start: 20201120
  57. LIDOCAINE [Concomitant]
     Active Substance: LIDOCAINE
     Dosage: LOCAL ANESTHESIA FOR PROCEDURE
     Dates: start: 20201119, end: 20201119
  58. OXACILLIN [Concomitant]
     Active Substance: OXACILLIN SODIUM
     Dosage: LEFT BASE ATELECTASIS
     Dates: start: 20201126, end: 20201129
  59. TEICOPLANIN [Concomitant]
     Active Substance: TEICOPLANIN
     Dates: start: 20201128, end: 20201130
  60. TEICOPLANIN [Concomitant]
     Active Substance: TEICOPLANIN
     Dosage: LEFT BASE ATELECTASIS
     Dates: start: 20201201, end: 20201201
  61. SODIUM CHLORIDE [Concomitant]
     Active Substance: SODIUM CHLORIDE
     Dosage: USUAL CONTRIBUTION
     Dates: start: 20201119, end: 20201119
  62. SODIUM CHLORIDE [Concomitant]
     Active Substance: SODIUM CHLORIDE
     Dosage: USUAL CONTRIBUTION
     Dates: start: 20201126, end: 20201126
  63. SODIUM CHLORIDE [Concomitant]
     Active Substance: SODIUM CHLORIDE
     Dosage: USUAL CONTRIBUTION
     Dates: start: 20201201, end: 20201201
  64. DIPYRONE [Concomitant]
     Active Substance: DIPYRONE
     Indication: Headache
     Dates: start: 20201118, end: 20201118
  65. HYDROCORTISONE [Concomitant]
     Active Substance: HYDROCORTISONE
     Dates: start: 20201127, end: 20201130
  66. HYDROCORTISONE [Concomitant]
     Active Substance: HYDROCORTISONE
     Dates: start: 20201130, end: 20201202
  67. HYPROMELLOSES [Concomitant]
     Active Substance: HYPROMELLOSES
     Dosage: 1 GTT EYE LUBRICATION
     Dates: start: 20201119, end: 20201202

REACTIONS (2)
  - Pneumonia bacterial [Fatal]
  - Renal impairment [Not Recovered/Not Resolved]

NARRATIVE: CASE EVENT DATE: 20201123
